FAERS Safety Report 5798426-7 (Version None)
Quarter: 2008Q3

REPORT INFORMATION
  Report Type: 
  Country: None (occurrence: None)
  Receive Date: 20080702
  Receipt Date: 20080624
  Transmission Date: 20090109
  Serious: Yes (Life-Threatening, Hospitalization, Other)
  Sender: FDA-Public Use
  Company Number: US-ASTRAZENECA-2006UW14368

PATIENT
  Age: 17298 Day
  Sex: Male
  Weight: 86.4 kg

DRUGS (26)
  1. SEROQUEL [Suspect]
     Indication: SCHIZOPHRENIA
     Dosage: 25-50 MG HS + 25 MG BID PRN
     Route: 048
     Dates: start: 20041206
  2. SEROQUEL [Suspect]
     Indication: BIPOLAR I DISORDER
     Dosage: 25-50 MG HS + 25 MG BID PRN
     Route: 048
     Dates: start: 20041206
  3. SEROQUEL [Suspect]
     Indication: POST-TRAUMATIC STRESS DISORDER
     Dosage: 25-50 MG HS + 25 MG BID PRN
     Route: 048
     Dates: start: 20041206
  4. SEROQUEL [Suspect]
     Route: 048
     Dates: start: 20051103, end: 20051215
  5. SEROQUEL [Suspect]
     Route: 048
     Dates: start: 20051103, end: 20051215
  6. SEROQUEL [Suspect]
     Route: 048
     Dates: start: 20051103, end: 20051215
  7. SERTRALINE [Concomitant]
     Dates: start: 19991025, end: 20030611
  8. SERTRALINE [Concomitant]
     Dates: start: 20020829
  9. LORAZEPAM [Concomitant]
     Dosage: Q4 HRS PRN
     Dates: start: 19991025
  10. LORAZEPAM [Concomitant]
     Dates: start: 20020829
  11. TRAZODONE HCL [Concomitant]
     Dates: start: 19991025
  12. TRAZODONE HCL [Concomitant]
     Dates: start: 20020829
  13. HYDROCODONE [Concomitant]
  14. ZETIA [Concomitant]
     Route: 048
  15. FEXOFENADINE HCL [Concomitant]
     Route: 048
  16. HYDROCHLOROTHIAZIDE [Concomitant]
     Route: 048
  17. MULTI-VITAMIN [Concomitant]
  18. PAROXETIENE HCL [Concomitant]
     Route: 048
     Dates: start: 20030725
  19. PRAVASTATIN SODIUM [Concomitant]
     Route: 048
  20. RANITIDINE HCL [Concomitant]
     Route: 048
  21. HALDOL [Concomitant]
     Dosage: 5 MG EVERY THREE HOURS
     Dates: start: 20051018, end: 20051028
  22. RISPERDAL [Concomitant]
     Dates: start: 20051003, end: 20051103
  23. BUPROPION HCL [Concomitant]
     Dates: start: 20021002, end: 20021018
  24. MIRTAZAPINE [Concomitant]
  25. FLUOXETINE [Concomitant]
  26. SERZONE [Concomitant]

REACTIONS (25)
  - BLOOD GLUCOSE INCREASED [None]
  - BLOOD POTASSIUM DECREASED [None]
  - DELIRIUM [None]
  - DEMENTIA [None]
  - DIABETIC HYPEROSMOLAR COMA [None]
  - ELECTROLYTE IMBALANCE [None]
  - ENCEPHALOPATHY [None]
  - HYPERGLYCAEMIA [None]
  - HYPERLIPIDAEMIA [None]
  - HYPOMAGNESAEMIA [None]
  - ISCHAEMIA [None]
  - METABOLIC ACIDOSIS [None]
  - NAUSEA [None]
  - PANCREATITIS [None]
  - PANCREATITIS ACUTE [None]
  - PELVIC FLUID COLLECTION [None]
  - PERITONEAL EFFUSION [None]
  - PLEURAL EFFUSION [None]
  - PNEUMONIA [None]
  - PYREXIA [None]
  - RENAL FAILURE ACUTE [None]
  - RENAL TUBULAR NECROSIS [None]
  - RESPIRATORY FAILURE [None]
  - TYPE 2 DIABETES MELLITUS [None]
  - VOMITING [None]
